FAERS Safety Report 10011133 (Version 1)
Quarter: 2014Q1

REPORT INFORMATION
  Report Type: Spontaneous
  Country: US (occurrence: US)
  Receive Date: 20140314
  Receipt Date: 20140314
  Transmission Date: 20141002
  Serious: Yes (Hospitalization)
  Sender: FDA-Public Use
  Company Number: US-BAYER-2014-037734

PATIENT
  Age: 37 Year
  Sex: Female

DRUGS (5)
  1. YAZ [Suspect]
  2. HYDROCODONE W/ACETAMINOPHEN [Concomitant]
     Dosage: 10-325
     Dates: start: 20110722
  3. CIPROFLOXACIN [Concomitant]
     Route: 047
  4. ACTONEL [Concomitant]
  5. LEVAQUIN [Concomitant]

REACTIONS (2)
  - Pulmonary embolism [Recovering/Resolving]
  - Deep vein thrombosis [Recovered/Resolved]
